FAERS Safety Report 5907909-8 (Version None)
Quarter: 2008Q4

REPORT INFORMATION
  Report Type: 
  Country: None (occurrence: None)
  Receive Date: 20081003
  Receipt Date: 20080923
  Transmission Date: 20090506
  Serious: Yes (Death, Other)
  Sender: FDA-Public Use
  Company Number: US-ELI_LILLY_AND_COMPANY-US200809005314

PATIENT
  Sex: Female

DRUGS (4)
  1. ZYPREXA [Suspect]
     Dosage: UNK, UNK
     Dates: start: 20050901
  2. HYPNOTICS AND SEDATIVES [Concomitant]
  3. ARICEPT [Concomitant]
  4. COLACE [Concomitant]

REACTIONS (14)
  - AMNESIA [None]
  - APHASIA [None]
  - BALANCE DISORDER [None]
  - CATATONIA [None]
  - COGNITIVE DISORDER [None]
  - CONSTIPATION [None]
  - DEATH [None]
  - DIARRHOEA HAEMORRHAGIC [None]
  - DIZZINESS [None]
  - HAEMATEMESIS [None]
  - MUSCLE CONTRACTIONS INVOLUNTARY [None]
  - STUPOR [None]
  - URINARY TRACT INFECTION [None]
  - WEIGHT INCREASED [None]
